FAERS Safety Report 8861996 (Version 2)
Quarter: 2012Q4

REPORT INFORMATION
  Report Type: 
  Country: US (occurrence: US)
  Receive Date: 20121025
  Receipt Date: 20121212
  Transmission Date: 20130627
  Serious: No
  Sender: FDA-Public Use
  Company Number: US-PFIZER INC-2012265313

PATIENT
  Sex: Female

DRUGS (2)
  1. CELEBREX [Suspect]
     Dosage: UNK
  2. SKELAXIN [Suspect]
     Dosage: UNK

REACTIONS (2)
  - Facial spasm [Unknown]
  - Therapeutic response unexpected [Unknown]
